FAERS Safety Report 4600116-0 (Version None)
Quarter: 2005Q1

REPORT INFORMATION
  Report Type: 
  Country: None (occurrence: None)
  Receive Date: 20050303
  Receipt Date: 20050222
  Transmission Date: 20050727
  Serious: Yes (Hospitalization)
  Sender: FDA-Public Use
  Company Number: 2005UW02827

PATIENT
  Age: 81 Year
  Sex: Female

DRUGS (6)
  1. CRESTOR [Suspect]
     Dates: start: 20040701, end: 20041101
  2. IMDUR [Concomitant]
  3. RHOTRAL [Concomitant]
  4. ADALAT [Concomitant]
  5. ASPIRIN [Concomitant]
  6. NOVO-PRAVASTATIN [Concomitant]

REACTIONS (2)
  - MYOCARDIAL INFARCTION [None]
  - PNEUMONIA [None]
